FAERS Safety Report 8990131 (Version 4)
Quarter: 2015Q1

REPORT INFORMATION
  Report Type: Spontaneous
  Country: PT (occurrence: PT)
  Receive Date: 20121228
  Receipt Date: 20150209
  Transmission Date: 20150721
  Serious: Yes (Other)
  Sender: FDA-Public Use
  Company Number: PT-JNJFOC-20121017488

PATIENT
  Sex: Female

DRUGS (9)
  1. HALOPERIDOL DECANOATE. [Suspect]
     Active Substance: HALOPERIDOL DECANOATE
     Indication: PSYCHOTIC DISORDER
     Route: 065
     Dates: start: 20130605
  2. AKINETON [Concomitant]
     Active Substance: BIPERIDEN HYDROCHLORIDE
     Indication: PRODUCT USED FOR UNKNOWN INDICATION
     Route: 065
  3. HALOPERIDOL DECANOATE. [Suspect]
     Active Substance: HALOPERIDOL DECANOATE
     Indication: PSYCHOTIC DISORDER
     Route: 065
     Dates: start: 201205
  4. LORENIN [Concomitant]
     Active Substance: LORAZEPAM
     Indication: PRODUCT USED FOR UNKNOWN INDICATION
     Route: 065
  5. RISPERDAL CONSTA [Suspect]
     Active Substance: RISPERIDONE
     Indication: ANXIETY
     Route: 030
     Dates: start: 2011, end: 20130605
  6. RISPERDAL CONSTA [Suspect]
     Active Substance: RISPERIDONE
     Indication: SCHIZOPHRENIA
     Route: 030
     Dates: start: 2011, end: 20130605
  7. RISPERDAL CONSTA [Suspect]
     Active Substance: RISPERIDONE
     Indication: DEPRESSION
     Route: 030
     Dates: start: 2011, end: 20130605
  8. RISPERDAL CONSTA [Suspect]
     Active Substance: RISPERIDONE
     Indication: PSYCHOTIC DISORDER
     Route: 030
     Dates: start: 2011, end: 20130605
  9. CIPRALEX [Concomitant]
     Active Substance: ESCITALOPRAM OXALATE
     Indication: PRODUCT USED FOR UNKNOWN INDICATION
     Route: 065

REACTIONS (13)
  - Gallbladder pain [Unknown]
  - Weight increased [Not Recovered/Not Resolved]
  - Constipation [Recovered/Resolved]
  - Chromaturia [Not Recovered/Not Resolved]
  - Gait disturbance [Unknown]
  - Asthenia [Not Recovered/Not Resolved]
  - Off label use [Unknown]
  - Drug dependence [Unknown]
  - Restless legs syndrome [Not Recovered/Not Resolved]
  - Dystonia [Not Recovered/Not Resolved]
  - Speech disorder [Unknown]
  - Depressed mood [Unknown]
  - Dry mouth [Unknown]

NARRATIVE: CASE EVENT DATE: 201306
